FAERS Safety Report 5721425-8 (Version None)
Quarter: 2008Q2

REPORT INFORMATION
  Report Type: 
  Country: None (occurrence: None)
  Receive Date: 20080429
  Receipt Date: 20080417
  Transmission Date: 20081010
  Serious: Yes (Other)
  Sender: FDA-Public Use
  Company Number: JP-JNJFOC-20080406784

PATIENT
  Age: 83 Year
  Sex: Female

DRUGS (6)
  1. LEVOFLOXACIN [Suspect]
     Route: 065
  2. LEVOFLOXACIN [Suspect]
     Route: 065
  3. LEVOFLOXACIN [Suspect]
     Indication: PULMONARY TUBERCULOSIS
     Route: 065
  4. ISONIAZID [Concomitant]
     Indication: TUBERCULOSIS
  5. RIFAMPICIN [Concomitant]
     Indication: TUBERCULOSIS
  6. ETHAMBUTOL HYDROCHLORIDE [Concomitant]
     Indication: TUBERCULOSIS

REACTIONS (1)
  - PNEUMONIA [None]
